FAERS Safety Report 8161458-8 (Version None)
Quarter: 2012Q1

REPORT INFORMATION
  Report Type: 
  Country: None (occurrence: None)
  Receive Date: 20120103
  Receipt Date: 20110929
  Transmission Date: 20120608
  Serious: No
  Sender: FDA-Public Use
  Company Number: AE-2011-001926

PATIENT
  Sex: Male
  Weight: 76.2043 kg

DRUGS (4)
  1. INCIVEK [Suspect]
     Dosage: 2250 MG (1125 MG, 2 IN 1 D), ORAL
     Route: 048
     Dates: start: 20110725
  2. PEGASYS [Concomitant]
  3. RIBSPHERE (RIBAVIRIN) [Concomitant]
  4. XANAX [Concomitant]

REACTIONS (11)
  - OBSESSIVE-COMPULSIVE PERSONALITY DISORDER [None]
  - DEPRESSION [None]
  - INGUINAL HERNIA [None]
  - HOSTILITY [None]
  - PRURITUS [None]
  - RASH [None]
  - PARANOIA [None]
  - FATIGUE [None]
  - ANGER [None]
  - DISTURBANCE IN ATTENTION [None]
  - HEPATITIS C RNA INCREASED [None]
